FAERS Safety Report 13368883 (Version 1)
Quarter: 2017Q1

REPORT INFORMATION
  Report Type: Spontaneous
  Country: CN (occurrence: CN)
  Receive Date: 20170324
  Receipt Date: 20170324
  Transmission Date: 20170429
  Serious: Yes (Death)
  Sender: FDA-Public Use
  Company Number: CN-UNITED THERAPEUTICS-UNT-2016-019722

PATIENT
  Age: 28 Year
  Sex: Female
  Weight: 47 kg

DRUGS (2)
  1. REMODULIN [Suspect]
     Active Substance: TREPROSTINIL
     Indication: PULMONARY ARTERIAL HYPERTENSION
     Dosage: 0.00125 ?G/KG, CONTINUING
     Route: 058
     Dates: start: 20161202
  2. REMODULIN [Suspect]
     Active Substance: TREPROSTINIL
     Dosage: 0.0175 ?G/KG, CONTINUING
     Route: 058
     Dates: start: 20161226

REACTIONS (4)
  - Pulmonary oedema [Fatal]
  - Maternal exposure during pregnancy [Unknown]
  - Lung infection [Fatal]
  - Caesarean section [Unknown]

NARRATIVE: CASE EVENT DATE: 2016
